FAERS Safety Report 4558580-1 (Version None)
Quarter: 2005Q1

REPORT INFORMATION
  Report Type: 
  Country: None (occurrence: None)
  Receive Date: 20050121
  Receipt Date: 20050111
  Transmission Date: 20050727
  Serious: Yes (Disabling)
  Sender: FDA-Public Use
  Company Number: US-ROCHE-392059

PATIENT
  Age: 49 Year
  Sex: Male

DRUGS (5)
  1. PEG-INTERFERON ALFA 2A (RO 25-8310) [Suspect]
     Route: 058
     Dates: start: 20041026, end: 20041222
  2. RIBAVIRIN [Suspect]
     Route: 048
     Dates: start: 20041026, end: 20041222
  3. SERTRALINE HYDROCHLORIDE [Concomitant]
  4. TRAZODONE HCL [Concomitant]
  5. HYDROCHLOROTHIAZIDE [Concomitant]

REACTIONS (10)
  - DEHYDRATION [None]
  - DIVERTICULUM INTESTINAL [None]
  - DIZZINESS [None]
  - GASTROENTERITIS [None]
  - HYPOKALAEMIA [None]
  - HYPOTENSION [None]
  - RENAL FAILURE ACUTE [None]
  - SYNCOPE [None]
  - VARICES OESOPHAGEAL [None]
  - WEIGHT DECREASED [None]
